FAERS Safety Report 6626566-9 (Version None)
Quarter: 2010Q1

REPORT INFORMATION
  Report Type: 
  Country: None (occurrence: None)
  Receive Date: 20100309
  Receipt Date: 20100309
  Transmission Date: 20100710
  Serious: Yes (Other)
  Sender: FDA-Public Use
  Company Number: None

PATIENT
  Sex: Female

DRUGS (11)
  1. DOXYCYCLINE HYCLATE [Suspect]
     Indication: ROSACEA
     Dates: start: 20100117
  2. EFFEXOR [Concomitant]
  3. CYMBALTA [Concomitant]
  4. BUSPIRONE HCL [Concomitant]
  5. CLONAZEPAM [Concomitant]
  6. NALTREXONE HYDROCHLORIDE [Concomitant]
  7. TRAZODONE HCL [Concomitant]
  8. AMBIEN CR [Concomitant]
  9. FISH OIL [Concomitant]
  10. M.V.I. [Concomitant]
  11. GABAPENTIN [Concomitant]

REACTIONS (1)
  - FOOD CRAVING [None]
